FAERS Safety Report 8646903 (Version 2)
Quarter: 2012Q4

REPORT INFORMATION
  Report Type: 
  Country: US (occurrence: US)
  Receive Date: 20120703
  Receipt Date: 20121102
  Transmission Date: 20130627
  Serious: Yes (Hospitalization)
  Sender: FDA-Public Use
  Company Number: US-BAYER-2012-064438

PATIENT
  Age: 31 Year
  Sex: Female
  Weight: 86.17 kg

DRUGS (15)
  1. YAZ [Suspect]
     Indication: CONTRACEPTION
     Dosage: UNK
     Dates: start: 200711, end: 200801
  2. YAZ [Suspect]
     Indication: MENSTRUAL CYCLE MANAGEMENT
  3. YAZ [Suspect]
     Indication: PREMENSTRUAL SYNDROME
  4. YASMIN [Suspect]
     Indication: CONTRACEPTION
     Dosage: UNK
     Dates: start: 200802, end: 200809
  5. YASMIN [Suspect]
     Indication: MENSTRUAL CYCLE MANAGEMENT
  6. YASMIN [Suspect]
     Indication: PREMENSTRUAL SYNDROME
  7. OCELLA [Suspect]
     Indication: CONTRACEPTION
     Dosage: UNK
     Dates: start: 200810, end: 200812
  8. OCELLA [Suspect]
     Indication: MENSTRUAL CYCLE MANAGEMENT
  9. OCELLA [Suspect]
     Indication: PREMENSTRUAL SYNDROME
  10. NEXIUM [Concomitant]
     Route: 048
  11. GLUCOSAMINE [Concomitant]
     Route: 048
  12. VALTREX [Concomitant]
     Dosage: 1 g, UNK
     Route: 048
     Dates: start: 20080805
  13. AMOXICILLIN [Concomitant]
     Dosage: 875 mg, UNK
     Route: 048
     Dates: start: 20080913
  14. FLUCONAZOLE [Concomitant]
     Dosage: 150 mg, UNK
     Route: 048
     Dates: start: 20080913
  15. PREVPAC [Concomitant]
     Dosage: UNK
     Route: 048
     Dates: start: 20080918

REACTIONS (9)
  - Gallbladder disorder [None]
  - Cholecystitis acute [None]
  - Abdominal pain [None]
  - Pain [None]
  - Injury [None]
  - General physical health deterioration [None]
  - Anxiety [None]
  - Emotional distress [None]
  - Anhedonia [None]
